FAERS Safety Report 9786551 (Version 2)
Quarter: 2014Q2

REPORT INFORMATION
  Report Type: Spontaneous
  Country: FR (occurrence: FR)
  Receive Date: 20131227
  Receipt Date: 20140402
  Transmission Date: 20141212
  Serious: Yes (Other)
  Sender: FDA-Public Use
  Company Number: FR-PFIZER INC-2013366797

PATIENT
  Age: 48 Year
  Sex: Female

DRUGS (1)
  1. SULFASALAZINE [Suspect]
     Indication: COLITIS ULCERATIVE
     Dosage: 3.0 G, UNK

REACTIONS (2)
  - Alveolitis [Recovering/Resolving]
  - Pulmonary granuloma [Recovering/Resolving]
